FAERS Safety Report 7563478-0 (Version None)
Quarter: 2011Q2

REPORT INFORMATION
  Report Type: 
  Country: None (occurrence: None)
  Receive Date: 20110622
  Receipt Date: 20110607
  Transmission Date: 20111010
  Serious: Yes (Hospitalization)
  Sender: FDA-Public Use
  Company Number: DE-JNJFOC-20110604285

PATIENT
  Sex: Female
  Weight: 59.1 kg

DRUGS (9)
  1. ZINC [Concomitant]
  2. PROBIOTICS [Concomitant]
  3. MESALAMINE [Concomitant]
     Route: 048
  4. FOLIC ACID [Concomitant]
  5. INFLIXIMAB, RECOMBINANT [Suspect]
     Indication: CROHN'S DISEASE
     Route: 042
     Dates: start: 20060302, end: 20090310
  6. MERCAPTOPURINE [Concomitant]
  7. BUDESONIDE [Concomitant]
  8. HUMIRA [Suspect]
     Indication: PRODUCT USED FOR UNKNOWN INDICATION
     Dates: start: 20080716, end: 20090127
  9. ANTIBIOTICS [Concomitant]
     Indication: CROHN'S DISEASE

REACTIONS (1)
  - CROHN'S DISEASE [None]
